FAERS Safety Report 16088589 (Version 4)
Quarter: 2019Q2

REPORT INFORMATION
  Report Type: Spontaneous
  Country: US (occurrence: US)
  Receive Date: 20190319
  Receipt Date: 20190523
  Transmission Date: 20190711
  Serious: No
  Sender: FDA-Public Use
  Company Number: US-PFIZER INC-2019112592

PATIENT
  Age: 77 Year
  Sex: Female

DRUGS (1)
  1. DEMEROL [Suspect]
     Active Substance: MEPERIDINE HYDROCHLORIDE
     Dosage: UNK

REACTIONS (2)
  - Confusional state [Unknown]
  - Drug hypersensitivity [Unknown]
